FAERS Safety Report 5900105-X (Version None)
Quarter: 2008Q3

REPORT INFORMATION
  Report Type: 
  Country: None (occurrence: None)
  Receive Date: 20080926
  Receipt Date: 20080924
  Transmission Date: 20090109
  Serious: No
  Sender: FDA-Public Use
  Company Number: JP-EISAI MEDICAL RESEARCH-E2090-00559-SPO-JP

PATIENT
  Age: 70 Year
  Sex: Female

DRUGS (4)
  1. EXCEGRAN [Suspect]
     Indication: EPILEPSY
     Route: 048
     Dates: end: 20080901
  2. EXCEGRAN [Suspect]
     Indication: BRAIN TUMOUR OPERATION
  3. RISPERDAL [Suspect]
     Indication: DRUG USE FOR UNKNOWN INDICATION
     Dosage: UNKNOWN
     Route: 048
     Dates: end: 20080101
  4. TEMODAL [Suspect]
     Indication: DRUG USE FOR UNKNOWN INDICATION
     Dosage: UNKNOWN
     Route: 048
     Dates: end: 20080901

REACTIONS (4)
  - DRUG ERUPTION [None]
  - JAUNDICE [None]
  - MUCOUS MEMBRANE DISORDER [None]
  - WHITE BLOOD CELL COUNT DECREASED [None]
